FAERS Safety Report 23060826 (Version 2)
Quarter: 2023Q4

REPORT INFORMATION
  Report Type: Spontaneous
  Country: JP (occurrence: JP)
  Receive Date: 20231012
  Receipt Date: 20231102
  Transmission Date: 20240110
  Serious: Yes (Hospitalization)
  Sender: FDA-Public Use
  Company Number: JP-BAYER-2023A138581

PATIENT
  Age: 64 Year
  Sex: Male

DRUGS (3)
  1. XARELTO [Suspect]
     Active Substance: RIVAROXABAN
     Indication: Atrial fibrillation
     Route: 048
  2. XARELTO [Suspect]
     Active Substance: RIVAROXABAN
     Indication: Cerebrovascular accident prophylaxis
     Route: 048
  3. WARFARIN [Suspect]
     Active Substance: WARFARIN
     Route: 048

REACTIONS (3)
  - Inguinal hernia repair [Unknown]
  - Hepatitis B surface antigen positive [Unknown]
  - Protein induced by vitamin K absence or antagonist II increased [Unknown]
